FAERS Safety Report 9289940 (Version 2)
Quarter: 2013Q3

REPORT INFORMATION
  Report Type: Spontaneous
  Country: US (occurrence: US)
  Receive Date: 20130515
  Receipt Date: 20130725
  Transmission Date: 20140515
  Serious: Yes (Hospitalization)
  Sender: FDA-Public Use
  Company Number: US-BAYER-2013-059094

PATIENT
  Age: 37 Year
  Sex: Female
  Weight: 84.81 kg

DRUGS (9)
  1. YAZ [Suspect]
     Indication: ACNE
  2. OCELLA [Suspect]
  3. ADVAIR [Concomitant]
     Indication: BRONCHIAL HYPERREACTIVITY
  4. PROVENTIL [Concomitant]
     Indication: BRONCHIAL HYPERREACTIVITY
  5. BENADRYL [Concomitant]
     Dosage: PRN
  6. AMOXICILLIN [Concomitant]
     Indication: SINUSITIS
     Dosage: 10 DAYS PRIOR TO ADMISSION
  7. CARDIZEM [Concomitant]
  8. DIGITALIS [Concomitant]
  9. AMIODARONE [Concomitant]

REACTIONS (1)
  - Transverse sinus thrombosis [Recovered/Resolved]
